FAERS Safety Report 5192687-3 (Version None)
Quarter: 2006Q4

REPORT INFORMATION
  Report Type: 
  Country: None (occurrence: None)
  Receive Date: 20061220
  Receipt Date: 20061205
  Transmission Date: 20070319
  Serious: Yes (Hospitalization)
  Sender: FDA-Public Use
  Company Number: 15326

PATIENT
  Age: 43 Year
  Sex: Female

DRUGS (2)
  1. CARBOPLATIN [Suspect]
     Dates: start: 20061018, end: 20061018
  2. TAXOL [Suspect]

REACTIONS (4)
  - CHILLS [None]
  - HYPOTENSION [None]
  - RASH [None]
  - SYNCOPE [None]
